FAERS Safety Report 24978060 (Version 1)
Quarter: 2025Q1

REPORT INFORMATION
  Report Type: Spontaneous
  Country: US (occurrence: US)
  Receive Date: 20250217
  Receipt Date: 20250217
  Transmission Date: 20250409
  Serious: No
  Sender: PERRIGO
  Company Number: US-PERRIGO-24US011461

PATIENT
  Sex: Male
  Weight: 83.9 kg

DRUGS (2)
  1. NICOTINE POLACRILEX [Suspect]
     Active Substance: NICOTINE
     Indication: Nicotine dependence
     Route: 002
     Dates: start: 2020, end: 20241204
  2. NICOTINE POLACRILEX [Suspect]
     Active Substance: NICOTINE
     Route: 002
     Dates: start: 20241205

REACTIONS (1)
  - Nicotine dependence [Unknown]

NARRATIVE: CASE EVENT DATE: 20200101
